FAERS Safety Report 9238717 (Version 1)
Quarter: 2013Q2

REPORT INFORMATION
  Report Type: Not Available
  Country: CN (occurrence: CN)
  Receive Date: 20130418
  Receipt Date: 20130418
  Transmission Date: 20140414
  Serious: Yes (Other)
  Sender: FDA-Public Use
  Company Number: CN-ASTELLAS-2013JP005053

PATIENT
  Sex: Female
  Weight: 61 kg

DRUGS (1)
  1. TACROLIMUS OINTMENT [Suspect]
     Indication: ECZEMA
     Dosage: UNK
     Route: 061
     Dates: start: 20121208, end: 20121208

REACTIONS (1)
  - Anaphylactic reaction [Recovered/Resolved]
